FAERS Safety Report 4412253-4 (Version None)
Quarter: 2004Q2

REPORT INFORMATION
  Report Type: 
  Country: None (occurrence: None)
  Receive Date: 20040630
  Receipt Date: 20040317
  Transmission Date: 20050107
  Serious: No
  Sender: FDA-Public Use
  Company Number: 04P-163-0253950-00

PATIENT
  Age: 59 Year
  Sex: Female
  Weight: 72.5755 kg

DRUGS (6)
  1. HUMIRA [Suspect]
     Indication: RHEUMATOID ARTHRITIS
     Dosage: 40 MG, 1 IN 2 WK, SUBCUTANEOUS
     Route: 058
     Dates: start: 20040311
  2. TRANYLCYPROMINE SULFATE [Concomitant]
  3. FOLIC ACID [Concomitant]
  4. FLUTICASONE PROPIONATE [Concomitant]
  5. ALPRAZOLAM [Concomitant]
  6. ALENDRONATE SODIUM [Concomitant]

REACTIONS (6)
  - BALANCE DISORDER [None]
  - HEADACHE [None]
  - HYPERACUSIS [None]
  - HYPOAESTHESIA [None]
  - MUSCLE SPASMS [None]
  - TINNITUS [None]
